FAERS Safety Report 22952823 (Version 2)
Quarter: 2023Q4

REPORT INFORMATION
  Report Type: Other
  Country: US (occurrence: None)
  Receive Date: 20230918
  Receipt Date: 20231011
  Transmission Date: 20240109
  Serious: Yes (Other)
  Sender: FDA-Public Use
  Company Number: US-ROCHE-3396292

PATIENT
  Age: 28 Year
  Sex: Female

DRUGS (1)
  1. EVRYSDI [Suspect]
     Active Substance: RISDIPLAM
     Indication: Spinal muscular atrophy
     Route: 065

REACTIONS (6)
  - Loss of consciousness [Unknown]
  - Sleep apnoea syndrome [Unknown]
  - Heart rate increased [Unknown]
  - Blood pressure abnormal [Unknown]
  - Drug intolerance [Unknown]
  - Drug ineffective [Unknown]
